FAERS Safety Report 15789215 (Version 1)
Quarter: 2019Q1

REPORT INFORMATION
  Report Type: Spontaneous
  Country: US (occurrence: US)
  Receive Date: 20190103
  Receipt Date: 20190103
  Transmission Date: 20190417
  Serious: Yes (Hospitalization, Disabling)
  Sender: FDA-Public Use
  Company Number: None

PATIENT
  Age: 48 Year
  Sex: Female
  Weight: 59.4 kg

DRUGS (9)
  1. OMEGA 3 [Concomitant]
     Active Substance: OMEGA-3 FATTY ACIDS
  2. GABAPENTIN. [Concomitant]
     Active Substance: GABAPENTIN
  3. VITAMIN C [Concomitant]
     Active Substance: ASCORBIC ACID
  4. CIPRO [Suspect]
     Active Substance: CIPROFLOXACIN HYDROCHLORIDE
     Indication: URINARY TRACT INFECTION
     Dosage: ?          QUANTITY:14 TABLET(S);?
     Route: 048
     Dates: start: 20180517, end: 20180523
  5. GAD STABILIZERS [Concomitant]
  6. FERRITIN CELL DETOX GLUTITHIONE [Concomitant]
  7. NALTREXONE [Concomitant]
     Active Substance: NALTREXONE
  8. MAGNESIUM [Concomitant]
     Active Substance: MAGNESIUM
  9. NAC [Concomitant]

REACTIONS (8)
  - Gastrointestinal disorder [None]
  - Impaired work ability [None]
  - Pain in extremity [None]
  - Groin pain [None]
  - Adrenal disorder [None]
  - Muscle atrophy [None]
  - Pain [None]
  - Neuropathy peripheral [None]

NARRATIVE: CASE EVENT DATE: 20180517
